FAERS Safety Report 7075493 (Version 5)
Quarter: 2013Q3

REPORT INFORMATION
  Report Type: Report from Study
  Country: US (occurrence: US)
  Receive Date: 20090807
  Receipt Date: 20130807
  Transmission Date: 20140515
  Serious: Yes (Life-Threatening, Other)
  Sender: FDA-Public Use
  Company Number: US-JNJFOC-20090801163

PATIENT
  Age: 58 Year
  Sex: Male
  Weight: 104.33 kg

DRUGS (9)
  1. DARUNAVIR [Suspect]
     Indication: HIV INFECTION
     Route: 048
     Dates: start: 20080505, end: 20081104
  2. ETRAVIRINE [Suspect]
     Indication: HIV INFECTION
     Route: 048
     Dates: start: 20080505, end: 20081104
  3. RITONAVIR [Suspect]
     Indication: HIV INFECTION
     Route: 048
     Dates: start: 20080505, end: 20081104
  4. RALTEGRAVIR [Suspect]
     Indication: HIV INFECTION
     Route: 048
     Dates: start: 20080505, end: 20081104
  5. HYDROCHLOROTHIAZIDE [Concomitant]
     Indication: HYPERTENSION
     Route: 048
  6. COZAAR [Concomitant]
     Indication: HYPERTENSION
     Route: 048
  7. ACICLOVIR [Concomitant]
     Indication: PROPHYLAXIS
     Route: 048
  8. TOCOPHEROL [Concomitant]
  9. COENZYME Q10 [Concomitant]
     Route: 065
     Dates: start: 20081017, end: 20081020

REACTIONS (1)
  - Acute hepatitis B [Recovered/Resolved]
